FAERS Safety Report 7653820-4 (Version None)
Quarter: 2011Q3

REPORT INFORMATION
  Report Type: 
  Country: None (occurrence: None)
  Receive Date: 20110803
  Receipt Date: 20110727
  Transmission Date: 20111222
  Serious: Yes (Death)
  Sender: FDA-Public Use
  Company Number: KR-PFIZER INC-2011161196

PATIENT
  Age: 83 Year
  Sex: Male

DRUGS (1)
  1. TIGECYCLINE [Suspect]
     Indication: GALLBLADDER ABSCESS
     Dosage: 100 MG, 2X/DAY
     Route: 042
     Dates: start: 20110415, end: 20110424

REACTIONS (1)
  - GALLBLADDER ABSCESS [None]
